FAERS Safety Report 25854898 (Version 1)
Quarter: 2025Q3

REPORT INFORMATION
  Report Type: Spontaneous
  Country: EU (occurrence: EU)
  Receive Date: 20250927
  Receipt Date: 20250927
  Transmission Date: 20251021
  Serious: Yes (Hospitalization)
  Sender: SANOFI AVENTIS
  Company Number: EU-BIOVITRUM-2025-ES-013017

PATIENT
  Sex: Male

DRUGS (2)
  1. ELOCTA [Suspect]
     Active Substance: EFMOROCTOCOG ALFA
     Indication: Factor VIII deficiency
     Dosage: 50 IU/KG/ WEEK
  2. ELOCTA [Suspect]
     Active Substance: EFMOROCTOCOG ALFA
     Indication: Factor VIII deficiency
     Dosage: 50 IU/KG/ WEEK

REACTIONS (2)
  - Haemorrhage [Recovered/Resolved]
  - Treatment noncompliance [Unknown]
